FAERS Safety Report 10519860 (Version 1)
Quarter: 2014Q4

REPORT INFORMATION
  Report Type: Spontaneous
  Country: US (occurrence: None)
  Receive Date: 20141014
  Receipt Date: 20141014
  Transmission Date: 20150528
  Serious: No
  Sender: FDA-Public Use
  Company Number: None

PATIENT
  Age: 66 Year
  Sex: Male
  Weight: 102.9 kg

DRUGS (1)
  1. MELOXICAM. [Suspect]
     Active Substance: MELOXICAM
     Indication: PAIN
     Route: 048
     Dates: start: 20130304, end: 20130305

REACTIONS (4)
  - Angina pectoris [None]
  - Dyspnoea [None]
  - Anxiety [None]
  - Chest pain [None]

NARRATIVE: CASE EVENT DATE: 20130304
